FAERS Safety Report 6275854-7 (Version None)
Quarter: 2009Q3

REPORT INFORMATION
  Report Type: 
  Country: None (occurrence: None)
  Receive Date: 20090721
  Receipt Date: 20090720
  Transmission Date: 20100115
  Serious: Yes (Other)
  Sender: FDA-Public Use
  Company Number: US-AMGEN-US332053

PATIENT
  Sex: Male
  Weight: 95.3 kg

DRUGS (9)
  1. NPLATE [Suspect]
     Indication: IDIOPATHIC THROMBOCYTOPENIC PURPURA
     Route: 058
     Dates: start: 20081030, end: 20090107
  2. DEXAMETHASONE [Suspect]
     Route: 048
  3. LANTUS [Concomitant]
     Route: 058
  4. NOVALOG INSULIN [Concomitant]
     Route: 058
  5. LOSARTAN POTASSIUM [Concomitant]
     Route: 048
  6. VITAMINS [Concomitant]
     Route: 065
  7. SIMVASTATIN [Concomitant]
     Route: 065
  8. SLEEPING MEDICATION NOS [Concomitant]
     Route: 065
  9. PREDNISONE [Concomitant]
     Dates: start: 20060819

REACTIONS (6)
  - BLOOD GLUCOSE INCREASED [None]
  - CATARACT [None]
  - DRUG INEFFECTIVE [None]
  - GLYCOSYLATED HAEMOGLOBIN INCREASED [None]
  - PLATELET COUNT DECREASED [None]
  - THROMBOSIS [None]
